FAERS Safety Report 6078324-4 (Version None)
Quarter: 2009Q1

REPORT INFORMATION
  Report Type: 
  Country: None (occurrence: None)
  Receive Date: 20090213
  Receipt Date: 20090206
  Transmission Date: 20090719
  Serious: Yes (Hospitalization)
  Sender: FDA-Public Use
  Company Number: US-GENENTECH-257693

PATIENT
  Sex: Female
  Weight: 79 kg

DRUGS (2)
  1. BLINDED DORNASE ALFA [Suspect]
     Indication: SINUSITIS
     Dosage: 2.5 MG, QD
     Route: 045
     Dates: start: 20070101
  2. BLINDED PLACEBO [Suspect]
     Indication: SINUSITIS
     Dosage: 2.5 MG, QD
     Route: 045
     Dates: start: 20070101

REACTIONS (1)
  - CYSTIC FIBROSIS LUNG [None]
